FAERS Safety Report 6883551-X (Version None)
Quarter: 2010Q3

REPORT INFORMATION
  Report Type: 
  Country: None (occurrence: None)
  Receive Date: 20100729
  Receipt Date: 20100713
  Transmission Date: 20110219
  Serious: Yes (Other)
  Sender: FDA-Public Use
  Company Number: CN-BAYER-201033901GPV

PATIENT
  Age: 87 Year
  Sex: Male

DRUGS (6)
  1. AVELOX [Suspect]
     Indication: LUNG INFECTION
     Dosage: TOTAL DAILY DOSE: 0.4 G
     Route: 042
     Dates: start: 20090921, end: 20090923
  2. AZITHROMYCIN [Concomitant]
     Indication: LUNG INFECTION
     Dosage: TOTAL DAILY DOSE: 0.5 G
     Route: 042
     Dates: start: 20090921
  3. TANREQING [Concomitant]
     Indication: LUNG INFECTION
     Route: 042
     Dates: start: 20090921
  4. TANSHINONE [Concomitant]
     Indication: CORONARY ARTERY DISEASE
     Dates: start: 20090921
  5. INTRALIPID 20% [Concomitant]
     Dosage: UNIT DOSE: 30 %
     Route: 042
     Dates: start: 20090921
  6. COMPOUND AMINO ACID [Concomitant]
     Route: 042
     Dates: start: 20090921

REACTIONS (2)
  - MYALGIA [None]
  - RHABDOMYOLYSIS [None]
